FAERS Safety Report 14753635 (Version 1)
Quarter: 2018Q2

REPORT INFORMATION
  Report Type: Spontaneous
  Country: US (occurrence: US)
  Receive Date: 20180412
  Receipt Date: 20180412
  Transmission Date: 20180711
  Serious: No
  Sender: FDA-Public Use
  Company Number: None

PATIENT

DRUGS (1)
  1. KRATOM SILVER THAI [Suspect]
     Active Substance: MITRAGYNINE\HERBALS
     Dates: start: 20180329, end: 20180329

REACTIONS (2)
  - Abdominal discomfort [None]
  - Vomiting [None]

NARRATIVE: CASE EVENT DATE: 20180329
